FAERS Safety Report 8907516 (Version 1)
Quarter: 2012Q4

REPORT INFORMATION
  Report Type: 
  Country: US (occurrence: US)
  Receive Date: 20121113
  Receipt Date: 20121113
  Transmission Date: 20130627
  Serious: Yes (Hospitalization)
  Sender: FDA-Public Use
  Company Number: US-PFIZER INC-2012283155

PATIENT
  Age: 23 Year
  Sex: Male
  Weight: 81.63 kg

DRUGS (6)
  1. GEODON [Suspect]
     Indication: DEPRESSION
     Dosage: 80 mg, 2x/day
     Route: 048
     Dates: end: 20121108
  2. GEODON [Suspect]
     Indication: ANXIETY
  3. PROZAC [Concomitant]
     Dosage: UNK
  4. TEGRETOL [Concomitant]
     Dosage: UNK
  5. HALOPERIDOL [Concomitant]
     Dosage: UNK
  6. VISTARIL [Concomitant]
     Dosage: UNK

REACTIONS (7)
  - Withdrawal syndrome [Recovering/Resolving]
  - Anxiety [Recovering/Resolving]
  - Blood pressure increased [Recovering/Resolving]
  - Panic attack [Recovering/Resolving]
  - Stress [Recovering/Resolving]
  - Nausea [Recovering/Resolving]
  - Vomiting [Recovering/Resolving]
